FAERS Safety Report 8231971-3 (Version None)
Quarter: 2012Q1

REPORT INFORMATION
  Report Type: 
  Country: None (occurrence: None)
  Receive Date: 20120323
  Receipt Date: 20120319
  Transmission Date: 20120608
  Serious: Yes (Hospitalization, Other)
  Sender: FDA-Public Use
  Company Number: CN-ABBOTT-12P-035-0916594-00

PATIENT
  Age: 68 Year
  Sex: Female

DRUGS (4)
  1. DEPAKENE [Suspect]
     Indication: POSTOPERATIVE CARE
     Dates: start: 20110811, end: 20110811
  2. DEPAKENE [Suspect]
     Indication: POSTOPERATIVE CARE
     Route: 050
     Dates: start: 20110808, end: 20110810
  3. DEPAKENE [Suspect]
     Dates: start: 20110812, end: 20110816
  4. CARBAMAZEPINE [Concomitant]
     Indication: PRODUCT USED FOR UNKNOWN INDICATION
     Dates: start: 20110811, end: 20110816

REACTIONS (2)
  - LOSS OF CONSCIOUSNESS [None]
  - ENCEPHALOPATHY [None]
